FAERS Safety Report 11169099 (Version 1)
Quarter: 2015Q2

REPORT INFORMATION
  Report Type: Spontaneous
  Country: LT (occurrence: LT)
  Receive Date: 20150605
  Receipt Date: 20150605
  Transmission Date: 20150821
  Serious: Yes (Life-Threatening, Hospitalization)
  Sender: FDA-Public Use
  Company Number: LT-PFIZER INC-2015187602

PATIENT
  Age: 44 Year
  Sex: Male
  Weight: 85 kg

DRUGS (5)
  1. ACETYLSALICYLIC ACID [Suspect]
     Active Substance: ASPIRIN
     Dosage: 14 DF, SINGLE
     Route: 048
     Dates: start: 20150428, end: 20150428
  2. LIBEXIN [Suspect]
     Active Substance: PRENOXDIAZINE HYDROCHLORIDE
     Dosage: 20 DF, SINGLE
     Route: 048
     Dates: start: 20150428, end: 20150428
  3. NEBICARD [Suspect]
     Active Substance: NEBIVOLOL HYDROCHLORIDE
     Dosage: 8 DF, SINGLE
     Route: 048
     Dates: start: 20150428, end: 20150428
  4. NORVASC [Suspect]
     Active Substance: AMLODIPINE BESYLATE
     Dosage: 10 DF, SINGLE
     Route: 048
     Dates: start: 20150428, end: 20150428
  5. XANAX [Suspect]
     Active Substance: ALPRAZOLAM
     Dosage: 6 DF, SINGLE
     Route: 048
     Dates: start: 20150428, end: 20150428

REACTIONS (2)
  - Intentional overdose [Recovered/Resolved]
  - Suicide attempt [Recovered/Resolved]

NARRATIVE: CASE EVENT DATE: 20150428
